FAERS Safety Report 17352551 (Version 2)
Quarter: 2020Q1

REPORT INFORMATION
  Report Type: Spontaneous
  Country: JP (occurrence: JP)
  Receive Date: 20200131
  Receipt Date: 20200322
  Transmission Date: 20200409
  Serious: Yes (Death, Other)
  Sender: FDA-Public Use
  Company Number: NVSJ2020JP001107

PATIENT
  Age: 56 Year
  Sex: Female
  Weight: 32 kg

DRUGS (1)
  1. ZOMETA [Suspect]
     Active Substance: ZOLEDRONIC ACID
     Indication: METASTASES TO BONE
     Dosage: 4 MG
     Route: 065
     Dates: start: 20111025, end: 20130319

REACTIONS (5)
  - Exposed bone in jaw [Unknown]
  - Breast cancer [Fatal]
  - Osteonecrosis of jaw [Not Recovered/Not Resolved]
  - Infection [Unknown]
  - Pain [Unknown]

NARRATIVE: CASE EVENT DATE: 20121218
